FAERS Safety Report 11174336 (Version 1)
Quarter: 2015Q2

REPORT INFORMATION
  Report Type: Spontaneous
  Country: US (occurrence: US)
  Receive Date: 20150609
  Receipt Date: 20150609
  Transmission Date: 20150821
  Serious: No
  Sender: FDA-Public Use
  Company Number: US-BAYER-2015-308670

PATIENT
  Age: 56 Year
  Sex: Female
  Weight: 68 kg

DRUGS (2)
  1. NAROPIN [Concomitant]
     Active Substance: ROPIVACAINE HYDROCHLORIDE
     Dosage: UNK
  2. ALEVE [Suspect]
     Active Substance: NAPROXEN SODIUM
     Indication: ANALGESIC THERAPY
     Dosage: 2 DF, BID
     Route: 048
     Dates: start: 2010

REACTIONS (2)
  - Extra dose administered [Unknown]
  - Drug ineffective [None]

NARRATIVE: CASE EVENT DATE: 2010
